FAERS Safety Report 8180510-4 (Version None)
Quarter: 2012Q1

REPORT INFORMATION
  Report Type: 
  Country: None (occurrence: None)
  Receive Date: 20120302
  Receipt Date: 20120223
  Transmission Date: 20120608
  Serious: Yes (Hospitalization)
  Sender: FDA-Public Use
  Company Number: US-MUTUAL PHARMACEUTICAL COMPANY, INC.-MTCD20120017

PATIENT
  Age: 30 Year
  Sex: Male

DRUGS (5)
  1. METOCLOPRAMIDE [Suspect]
     Indication: NAUSEA
     Route: 065
  2. METRONIDAZOLE HYDROCHLORIDE [Suspect]
     Indication: CLOSTRIDIUM DIFFICILE COLITIS
     Route: 065
  3. DOXYCYCLINE [Suspect]
     Indication: MALARIA PROPHYLAXIS
     Route: 065
  4. VANCOMYCIN [Suspect]
     Indication: CLOSTRIDIUM DIFFICILE COLITIS
     Route: 048
  5. METOCLOPRAMIDE [Suspect]
     Indication: VOMITING

REACTIONS (6)
  - SUICIDAL IDEATION [None]
  - DRUG INTERACTION [None]
  - INSOMNIA [None]
  - HOMICIDAL IDEATION [None]
  - TACHYPHRENIA [None]
  - RESTLESSNESS [None]
